FAERS Safety Report 9765746 (Version 1)
Quarter: 2013Q4

REPORT INFORMATION
  Report Type: Spontaneous
  Country: US (occurrence: US)
  Receive Date: 20131217
  Receipt Date: 20131217
  Transmission Date: 20140711
  Serious: No
  Sender: FDA-Public Use
  Company Number: US-GLAXOSMITHKLINE-A1011147A

PATIENT
  Age: 76 Year
  Sex: Female

DRUGS (1)
  1. VOTRIENT [Suspect]
     Indication: RENAL CANCER
     Dosage: 200MG SEE DOSAGE TEXT
     Route: 048
     Dates: start: 20120214

REACTIONS (4)
  - Fatigue [Unknown]
  - Vomiting [Unknown]
  - Abdominal pain [Unknown]
  - Frequent bowel movements [Unknown]
